FAERS Safety Report 11073432 (Version 2)
Quarter: 2015Q2

REPORT INFORMATION
  Report Type: Spontaneous
  Country: US (occurrence: US)
  Receive Date: 20150428
  Receipt Date: 20150520
  Transmission Date: 20150821
  Serious: No
  Sender: FDA-Public Use
  Company Number: US-PFIZER INC-2015119857

PATIENT
  Age: 73 Year
  Sex: Female
  Weight: 76.19 kg

DRUGS (3)
  1. SUTENT [Suspect]
     Active Substance: SUNITINIB MALATE
     Indication: RENAL CELL CARCINOMA STAGE IV
     Dosage: 50 MG, CYCLIC (DAILY, 28 DAYS ON/14 DAYS OFF)
     Route: 048
     Dates: start: 201504
  2. METOPROLOL [Concomitant]
     Active Substance: METOPROLOL
     Dosage: 25 MG, 2X/DAY
  3. DILTIAZEM [Concomitant]
     Active Substance: DILTIAZEM
     Indication: CARDIAC DISORDER
     Dosage: 120 MG, 1X/DAY

REACTIONS (5)
  - Malaise [Unknown]
  - Nausea [Recovered/Resolved]
  - Constipation [Recovering/Resolving]
  - Stomatitis [Recovering/Resolving]
  - Hypersomnia [Recovering/Resolving]
